FAERS Safety Report 21569408 (Version 2)
Quarter: 2022Q4

REPORT INFORMATION
  Report Type: Report from Study
  Country: DE (occurrence: DE)
  Receive Date: 20221109
  Receipt Date: 20221117
  Transmission Date: 20230112
  Serious: Yes (Death, Other)
  Sender: FDA-Public Use
  Company Number: DE-TAKEDA-2022TUS083188

PATIENT
  Age: 9 Year
  Sex: Female

DRUGS (2)
  1. HUMAN IMMUNOGLOBULIN G [Suspect]
     Active Substance: HUMAN IMMUNOGLOBULIN G
     Indication: Secondary immunodeficiency
     Dosage: 3 GRAM, 1/WEEK
     Route: 058
     Dates: start: 20220811
  2. HUMAN IMMUNOGLOBULIN G [Suspect]
     Active Substance: HUMAN IMMUNOGLOBULIN G
     Dosage: 3 GRAM, 1/WEEK
     Route: 058
     Dates: start: 20220811

REACTIONS (1)
  - Death [Fatal]

NARRATIVE: CASE EVENT DATE: 20221103
